FAERS Safety Report 5043210-5 (Version None)
Quarter: 2006Q3

REPORT INFORMATION
  Report Type: 
  Country: None (occurrence: None)
  Receive Date: 20060703
  Receipt Date: 20060703
  Transmission Date: 20061208
  Serious: Yes (Other)
  Sender: FDA-Public Use
  Company Number: None

PATIENT
  Age: 64 Year
  Sex: Male
  Weight: 115 kg

DRUGS (13)
  1. SIMVASTATIN [Suspect]
  2. LORATADINE [Concomitant]
  3. TERAZOSIN HCL [Concomitant]
  4. LOSARTAN POTASSIUM [Concomitant]
  5. OLANZAPINE [Concomitant]
  6. VARDENAFIL HCL [Concomitant]
  7. FLUNISOLIDE [Concomitant]
  8. TRAZODONE HCL [Concomitant]
  9. OMEPRAZOLE [Concomitant]
  10. POTASSIUM CITRATE [Concomitant]
  11. CITALOPRAM HYDROBROMIDE [Concomitant]
  12. MENTHOL / METHYL SALICYLATE [Concomitant]
  13. ETODOLAC [Concomitant]

REACTIONS (1)
  - MYALGIA [None]
